FAERS Safety Report 18609310 (Version 1)
Quarter: 2020Q4

REPORT INFORMATION
  Report Type: Spontaneous
  Country: PL (occurrence: PL)
  Receive Date: 20201214
  Receipt Date: 20201214
  Transmission Date: 20210114
  Serious: Yes (Other)
  Sender: FDA-Public Use
  Company Number: PL-ROCHE-2730898

PATIENT

DRUGS (3)
  1. ENBREL [Concomitant]
     Active Substance: ETANERCEPT
  2. SIMPONI [Concomitant]
     Active Substance: GOLIMUMAB
  3. ROACTEMRA [Suspect]
     Active Substance: TOCILIZUMAB
     Indication: COVID-19
     Route: 065

REACTIONS (1)
  - COVID-19 [Unknown]
